FAERS Safety Report 21933586 (Version 2)
Quarter: 2023Q1

REPORT INFORMATION
  Report Type: Spontaneous
  Country: IL (occurrence: IL)
  Receive Date: 20230201
  Receipt Date: 20230221
  Transmission Date: 20230418
  Serious: Yes (Death, Congenital Anomaly, Other)
  Sender: FDA-Public Use
  Company Number: IL-WOCKHARDT BIO AG-2023WBA000017

PATIENT
  Sex: Male

DRUGS (2)
  1. MINOXIDIL [Suspect]
     Active Substance: MINOXIDIL
     Indication: Maternal exposure during pregnancy
     Dosage: UNKNOWN
     Route: 064
  2. SULFAMETHOXAZOLE\TRIMETHOPRIM [Suspect]
     Active Substance: SULFAMETHOXAZOLE\TRIMETHOPRIM
     Indication: Maternal exposure during pregnancy
     Dosage: UNK
     Route: 064

REACTIONS (4)
  - Caudal regression syndrome [Fatal]
  - Sirenomelia [Fatal]
  - Brachydactyly [Fatal]
  - Foetal exposure during pregnancy [Fatal]
